FAERS Safety Report 9681054 (Version 1)
Quarter: 2013Q4

REPORT INFORMATION
  Report Type: Report from Study
  Country: CA (occurrence: CA)
  Receive Date: 20131111
  Receipt Date: 20131111
  Transmission Date: 20140711
  Serious: Yes (Other)
  Sender: FDA-Public Use
  Company Number: PHHY2013CA128018

PATIENT
  Age: 61 Year
  Sex: Female

DRUGS (2)
  1. ACLASTA [Suspect]
     Indication: OSTEOPOROSIS
     Dosage: 5 MG/100 ML, UNK
     Route: 042
     Dates: start: 20121105
  2. ACLASTA [Suspect]
     Dosage: 5 MG/100 ML, UNK
     Route: 042
     Dates: start: 20131107

REACTIONS (2)
  - Fall [Unknown]
  - Wrist fracture [Unknown]
